FAERS Safety Report 5373183-7 (Version None)
Quarter: 2007Q2

REPORT INFORMATION
  Report Type: 
  Country: None (occurrence: None)
  Receive Date: 20070626
  Receipt Date: 20070612
  Transmission Date: 20071010
  Serious: Yes (Hospitalization)
  Sender: FDA-Public Use
  Company Number: SPI200700300

PATIENT
  Age: 85 Year
  Sex: Female
  Weight: 50.3 kg

DRUGS (7)
  1. AMITIZA [Suspect]
     Indication: CONSTIPATION
     Dosage: 24 MCG, BID, ORAL
     Route: 048
     Dates: start: 20070401, end: 20070417
  2. ZELNORM                             /01470301/ (TEGASTEROD) [Concomitant]
  3. INTERAL-LA              (PROPRANOLOL HYDROCHLORIDE) [Concomitant]
  4. AVAPRO [Concomitant]
  5. LANOXIN [Concomitant]
  6. VICODIN [Concomitant]
  7. XANAX [Concomitant]

REACTIONS (2)
  - HYPONATRAEMIA [None]
  - URINARY RETENTION [None]
